FAERS Safety Report 11636422 (Version 1)
Quarter: 2015Q4

REPORT INFORMATION
  Report Type: Spontaneous
  Country: US (occurrence: US)
  Receive Date: 20151016
  Receipt Date: 20151016
  Transmission Date: 20160304
  Serious: No
  Sender: FDA-Public Use
  Company Number: US-ASTRAZENECA-2015SE95885

PATIENT
  Age: 766 Month
  Sex: Female
  Weight: 108.4 kg

DRUGS (6)
  1. BYDUREON [Suspect]
     Active Substance: EXENATIDE
     Route: 058
     Dates: start: 201503
  2. DIOVAN [Concomitant]
     Active Substance: VALSARTAN
     Route: 048
  3. METFORMIN [Concomitant]
     Active Substance: METFORMIN HYDROCHLORIDE
     Route: 048
  4. GLUCOTROL XL [Concomitant]
     Active Substance: GLIPIZIDE
     Route: 048
  5. WELCHOL [Concomitant]
     Active Substance: COLESEVELAM HYDROCHLORIDE
     Route: 048
  6. ZOCOR [Concomitant]
     Active Substance: SIMVASTATIN
     Route: 048

REACTIONS (4)
  - Dysgeusia [Unknown]
  - Nausea [Recovered/Resolved]
  - Eructation [Unknown]
  - Rash [Unknown]

NARRATIVE: CASE EVENT DATE: 201503
